FAERS Safety Report 5289344-1 (Version None)
Quarter: 2007Q2

REPORT INFORMATION
  Report Type: 
  Country: None (occurrence: None)
  Receive Date: 20070404
  Receipt Date: 20070404
  Transmission Date: 20071010
  Serious: Yes (Hospitalization)
  Sender: FDA-Public Use
  Company Number: None

PATIENT
  Age: 40 Year
  Sex: Female

DRUGS (5)
  1. CYTOXAN [Suspect]
     Indication: T-CELL LYMPHOMA
  2. DOXORUBICIN HCL [Suspect]
     Indication: T-CELL LYMPHOMA
  3. VINCRISTINE [Suspect]
     Indication: T-CELL LYMPHOMA
  4. PREDNISONE TAB [Suspect]
     Indication: T-CELL LYMPHOMA
  5. CAMPATH [Suspect]
     Indication: T-CELL LYMPHOMA

REACTIONS (2)
  - FEBRILE NEUTROPENIA [None]
  - PLATELET COUNT DECREASED [None]
